FAERS Safety Report 9549080 (Version 1)
Quarter: 2013Q3

REPORT INFORMATION
  Report Type: Spontaneous
  Country: US (occurrence: None)
  Receive Date: 20130923
  Receipt Date: 20130923
  Transmission Date: 20140515
  Serious: Yes (Disabling, Other)
  Sender: FDA-Public Use
  Company Number: None

PATIENT
  Age: 54 Year
  Sex: Female
  Weight: 73.94 kg

DRUGS (1)
  1. GADOLINIUM [Suspect]

REACTIONS (17)
  - Respiratory disorder [None]
  - Cough [None]
  - Rash [None]
  - Renal impairment [None]
  - Skin ulcer [None]
  - Eye pain [None]
  - Vision blurred [None]
  - Night blindness [None]
  - Fall [None]
  - Musculoskeletal chest pain [None]
  - Arthralgia [None]
  - Dizziness [None]
  - Gait disturbance [None]
  - Muscular weakness [None]
  - Joint range of motion decreased [None]
  - Meningioma [None]
  - Discomfort [None]
